FAERS Safety Report 17369006 (Version 1)
Quarter: 2020Q1

REPORT INFORMATION
  Report Type: Spontaneous
  Country: US (occurrence: US)
  Receive Date: 20200120
  Receipt Date: 20200120
  Transmission Date: 20200409
  Serious: Yes (Hospitalization)
  Sender: FDA-Public Use
  Company Number: None

PATIENT
  Age: 76 Year
  Sex: Female

DRUGS (4)
  1. UBIGUINOL [Concomitant]
  2. FORTEO [Suspect]
     Active Substance: TERIPARATIDE
     Indication: SENILE OSTEOPOROSIS
     Dosage: ?          OTHER STRENGTH:600/2.4 UG/ML;?
     Route: 058
     Dates: start: 20180515
  3. SUNFLOWER [Concomitant]
     Active Substance: HELIANTHUS ANNUUS POLLEN
  4. CURCUMIN/TURMERIC [Concomitant]

REACTIONS (4)
  - Electrolyte depletion [None]
  - Headache [None]
  - Syncope [None]
  - Visual impairment [None]

NARRATIVE: CASE EVENT DATE: 20200117
